FAERS Safety Report 14763148 (Version 4)
Quarter: 2018Q4

REPORT INFORMATION
  Report Type: Report from Study
  Country: None (occurrence: DE)
  Receive Date: 20180416
  Receipt Date: 20181119
  Transmission Date: 20190204
  Serious: Yes (Hospitalization, Other)
  Sender: FDA-Public Use
  Company Number: DE-ABBVIE-18K-062-2322364-00

PATIENT
  Age: 49 Year
  Sex: Female
  Weight: 96 kg

DRUGS (30)
  1. MTX [Suspect]
     Active Substance: METHOTREXATE SODIUM
     Route: 065
     Dates: start: 201506, end: 201506
  2. FENTANYL. [Concomitant]
     Active Substance: FENTANYL
     Indication: PRODUCT USED FOR UNKNOWN INDICATION
     Dates: start: 201802
  3. CHOLECALCIFEROL [Concomitant]
     Active Substance: CHOLECALCIFEROL
     Indication: PRODUCT USED FOR UNKNOWN INDICATION
     Dosage: UNIT DOSE-20000 UNKNOWN
  4. ZIENAM [Concomitant]
     Active Substance: CILASTATIN SODIUM\IMIPENEM
     Indication: PRODUCT USED FOR UNKNOWN INDICATION
     Dates: start: 201802, end: 2018
  5. HUMIRA [Suspect]
     Active Substance: ADALIMUMAB
     Route: 058
     Dates: start: 20180720, end: 20180926
  6. XELJANZ [Suspect]
     Active Substance: TOFACITINIB CITRATE
     Indication: PRODUCT USED FOR UNKNOWN INDICATION
     Route: 065
     Dates: start: 201709, end: 20171204
  7. MTX [Suspect]
     Active Substance: METHOTREXATE SODIUM
     Route: 065
     Dates: start: 2017
  8. FUROSEMID [Concomitant]
     Active Substance: FUROSEMIDE
     Indication: PRODUCT USED FOR UNKNOWN INDICATION
  9. FONDAPARINUX [Concomitant]
     Active Substance: FONDAPARINUX
     Indication: PRODUCT USED FOR UNKNOWN INDICATION
  10. PANTOPRAZOL [Concomitant]
     Active Substance: PANTOPRAZOLE SODIUM
     Indication: PRODUCT USED FOR UNKNOWN INDICATION
  11. VANCOMYCIN [Concomitant]
     Active Substance: VANCOMYCIN
     Indication: ANTIBIOTIC THERAPY
     Dates: start: 201803
  12. MTX [Suspect]
     Active Substance: METHOTREXATE SODIUM
     Route: 065
     Dates: start: 2016, end: 2016
  13. SIMVASTATIN. [Concomitant]
     Active Substance: SIMVASTATIN
     Indication: PRODUCT USED FOR UNKNOWN INDICATION
  14. LEVOTHYROXIN [Concomitant]
     Active Substance: LEVOTHYROXINE
     Indication: PRODUCT USED FOR UNKNOWN INDICATION
  15. LEVODOPA/BENSERAZIDE [Concomitant]
     Active Substance: BENSERAZIDE\LEVODOPA
     Indication: PRODUCT USED FOR UNKNOWN INDICATION
  16. OXYCODON [Concomitant]
     Active Substance: OXYCODONE
     Indication: PRODUCT USED FOR UNKNOWN INDICATION
  17. CLONT [Concomitant]
     Indication: ANTIBIOTIC THERAPY
     Dates: start: 201802, end: 2018
  18. HUMIRA [Suspect]
     Active Substance: ADALIMUMAB
     Indication: RHEUMATOID ARTHRITIS
     Route: 058
     Dates: start: 20171213, end: 20180131
  19. TELMISARTAN. [Concomitant]
     Active Substance: TELMISARTAN
     Indication: PRODUCT USED FOR UNKNOWN INDICATION
  20. LODOTRA [Concomitant]
     Active Substance: PREDNISONE
     Indication: PRODUCT USED FOR UNKNOWN INDICATION
  21. DENOSUMAB [Concomitant]
     Active Substance: DENOSUMAB
     Indication: PRODUCT USED FOR UNKNOWN INDICATION
  22. PROLIA [Concomitant]
     Active Substance: DENOSUMAB
     Indication: PRODUCT USED FOR UNKNOWN INDICATION
  23. ARIXTRA [Concomitant]
     Active Substance: FONDAPARINUX SODIUM
     Indication: PRODUCT USED FOR UNKNOWN INDICATION
  24. ROCEPHIN [Concomitant]
     Active Substance: CEFTRIAXONE SODIUM
     Indication: ANTIBIOTIC THERAPY
     Route: 042
     Dates: start: 201802, end: 2018
  25. MTX [Suspect]
     Active Substance: METHOTREXATE SODIUM
     Route: 065
     Dates: start: 201606
  26. MTX [Suspect]
     Active Substance: METHOTREXATE SODIUM
     Route: 065
     Dates: end: 2017
  27. PREDNISOLON [Concomitant]
     Active Substance: PREDNISOLONE
     Indication: PRODUCT USED FOR UNKNOWN INDICATION
  28. ONDANSETRON [Concomitant]
     Active Substance: ONDANSETRON
     Indication: PRODUCT USED FOR UNKNOWN INDICATION
     Dates: start: 201803
  29. UBRETID [Concomitant]
     Active Substance: DISTIGMINE BROMIDE
     Indication: PRODUCT USED FOR UNKNOWN INDICATION
     Dates: start: 201803
  30. MTX [Suspect]
     Active Substance: METHOTREXATE SODIUM
     Indication: PRODUCT USED FOR UNKNOWN INDICATION
     Route: 065
     Dates: start: 201502, end: 201503

REACTIONS (45)
  - Abdominal adhesions [Not Recovered/Not Resolved]
  - Peritonitis [Unknown]
  - Deep vein thrombosis [Unknown]
  - Vomiting [Recovering/Resolving]
  - Pain [Unknown]
  - Musculoskeletal stiffness [Unknown]
  - Urinary tract infection [Unknown]
  - Joint swelling [Unknown]
  - Nasopharyngitis [Unknown]
  - Blood creatine phosphokinase increased [Unknown]
  - Pyrexia [Unknown]
  - Dyspnoea exertional [Unknown]
  - Multiple organ dysfunction syndrome [Unknown]
  - Stress fracture [Not Recovered/Not Resolved]
  - Joint range of motion decreased [Unknown]
  - Abdominal pain [Recovering/Resolving]
  - Body temperature increased [Recovering/Resolving]
  - Clostridium difficile infection [Unknown]
  - Headache [Unknown]
  - Chills [Unknown]
  - Subchondral insufficiency fracture [Unknown]
  - Nausea [Recovered/Resolved]
  - Peripheral swelling [Unknown]
  - Weight increased [Unknown]
  - Osteochondrosis [Unknown]
  - Blood lactate dehydrogenase increased [Unknown]
  - Nausea [Recovered/Resolved]
  - Influenza like illness [Unknown]
  - Nausea [Unknown]
  - Inflammatory marker increased [Recovering/Resolving]
  - Spigelian hernia [Unknown]
  - General physical health deterioration [Unknown]
  - Abdominal pain lower [Unknown]
  - Diarrhoea [Unknown]
  - Hepatic steatosis [Unknown]
  - Sleep disorder [Unknown]
  - Musculoskeletal pain [Unknown]
  - Gastrointestinal necrosis [Not Recovered/Not Resolved]
  - Peritonitis [Not Recovered/Not Resolved]
  - Pain in extremity [Unknown]
  - Oedema peripheral [Recovered/Resolved]
  - Pneumonia [Unknown]
  - Asthenia [Unknown]
  - Intestinal perforation [Recovering/Resolving]
  - Arthralgia [Unknown]

NARRATIVE: CASE EVENT DATE: 201712
